FAERS Safety Report 8697688 (Version 2)
Quarter: 2012Q4

REPORT INFORMATION
  Report Type: 
  Country: US (occurrence: US)
  Receive Date: 20120801
  Receipt Date: 20121022
  Transmission Date: 20130627
  Serious: No
  Sender: FDA-Public Use
  Company Number: US-ASTRAZENECA-2012SE50360

PATIENT
  Age: 62 Year
  Sex: Female

DRUGS (1)
  1. SEROQUEL [Suspect]
     Indication: BIPOLAR DISORDER
     Dosage: 50 mg during the day and 400 mg at bedtime
     Route: 048

REACTIONS (5)
  - Fibromyalgia [Unknown]
  - Bursitis [Unknown]
  - Malaise [Unknown]
  - Nervousness [Unknown]
  - Intentional drug misuse [Unknown]
